FAERS Safety Report 8115147-6 (Version None)
Quarter: 2012Q1

REPORT INFORMATION
  Report Type: 
  Country: None (occurrence: None)
  Receive Date: 20120201
  Receipt Date: 20120119
  Transmission Date: 20120608
  Serious: Yes (Hospitalization, Disabling, Other)
  Sender: FDA-Public Use
  Company Number: 2012P1002828

PATIENT
  Age: 19 Year
  Sex: Male
  Weight: 52.6173 kg

DRUGS (2)
  1. SOLODYN [Suspect]
     Indication: ACNE
     Dosage: 105 MG;QD;PO, 105 MG;QD;PO
     Route: 048
     Dates: start: 20110101, end: 20111001
  2. SOLODYN [Suspect]
     Indication: ACNE
     Dosage: 105 MG;QD;PO, 105 MG;QD;PO
     Route: 048
     Dates: start: 20111001, end: 20111201

REACTIONS (3)
  - DEAFNESS [None]
  - CEREBROVASCULAR ACCIDENT [None]
  - OTOTOXICITY [None]
